FAERS Safety Report 4722622-0 (Version None)
Quarter: 2005Q3

REPORT INFORMATION
  Report Type: 
  Country: None (occurrence: None)
  Receive Date: 20050719
  Receipt Date: 20040928
  Transmission Date: 20060218
  Serious: Yes (Hospitalization)
  Sender: FDA-Public Use
  Company Number: 2004236386US

PATIENT
  Sex: Male

DRUGS (5)
  1. CELEBREX [Suspect]
     Indication: ARTHRITIS
     Dosage: 200 MG, QD
     Dates: start: 20010711, end: 20010901
  2. ALTACE [Suspect]
  3. FUROSEMIDE [Concomitant]
  4. ASPIRIN [Concomitant]
  5. COREG [Concomitant]

REACTIONS (1)
  - RENAL FAILURE ACUTE [None]
